FAERS Safety Report 24463919 (Version 1)
Quarter: 2024Q4

REPORT INFORMATION
  Report Type: Report from Study
  Country: US (occurrence: US)
  Receive Date: 20241018
  Receipt Date: 20241018
  Transmission Date: 20250114
  Serious: No
  Sender: ROCHE
  Company Number: US-ROCHE-3492442

PATIENT
  Age: 34 Year
  Sex: Male

DRUGS (10)
  1. XOLAIR [Suspect]
     Active Substance: OMALIZUMAB
     Indication: Idiopathic urticaria
     Route: 058
  2. XOLAIR [Suspect]
     Active Substance: OMALIZUMAB
     Indication: Rhinitis allergic
  3. LAMOTRIGINE [Concomitant]
     Active Substance: LAMOTRIGINE
     Dosage: 125
  4. VITAMIN C [Concomitant]
     Active Substance: ASCORBIC ACID
  5. VITAMIN A [Concomitant]
     Active Substance: VITAMIN A
  6. VITAMIN B [Concomitant]
     Active Substance: VITAMIN B
  7. FLUTICASONE [Concomitant]
     Active Substance: FLUTICASONE
     Route: 045
  8. FEXOFENADINE [Concomitant]
     Active Substance: FEXOFENADINE HYDROCHLORIDE
  9. LORATADINE [Concomitant]
     Active Substance: LORATADINE
  10. CITIRIZINE [Concomitant]

REACTIONS (1)
  - Pruritus [Unknown]
